FAERS Safety Report 5372785-1 (Version None)
Quarter: 2007Q2

REPORT INFORMATION
  Report Type: 
  Country: None (occurrence: None)
  Receive Date: 20070626
  Receipt Date: 20070611
  Transmission Date: 20071010
  Serious: Yes (Other)
  Sender: FDA-Public Use
  Company Number: 2007VX001624

PATIENT
  Age: 42 Year
  Sex: Male
  Weight: 70 kg

DRUGS (3)
  1. FLURAZEPAM HYDROCHLORIDE [Suspect]
     Dates: start: 20070610, end: 20070610
  2. MORPHINE [Suspect]
     Dosage: 360 MG;X1;
     Dates: start: 20060610, end: 20070610
  3. ALCOHOL (ETHANOL) [Suspect]
     Dates: start: 20070610, end: 20070610

REACTIONS (4)
  - ALCOHOL USE [None]
  - COMA [None]
  - INTENTIONAL OVERDOSE [None]
  - SUICIDE ATTEMPT [None]
